FAERS Safety Report 19371504 (Version 1)
Quarter: 2021Q2

REPORT INFORMATION
  Report Type: Spontaneous
  Country: US (occurrence: US)
  Receive Date: 20210603
  Receipt Date: 20210603
  Transmission Date: 20210717
  Serious: No
  Sender: FDA-Public Use
  Company Number: US-SA-2021SA182331

PATIENT
  Age: 66 Year
  Sex: Female

DRUGS (2)
  1. VYZULTA [Concomitant]
     Active Substance: LATANOPROSTENE BUNOD
  2. DUPIXENT [Suspect]
     Active Substance: DUPILUMAB
     Indication: DERMATITIS ATOPIC
     Dosage: 300 MG, QOW
     Route: 058
     Dates: start: 20180131

REACTIONS (1)
  - Dermatitis atopic [Not Recovered/Not Resolved]
